FAERS Safety Report 5771886-3 (Version None)
Quarter: 2008Q2

REPORT INFORMATION
  Report Type: 
  Country: None (occurrence: None)
  Receive Date: 20080613
  Receipt Date: 20080611
  Transmission Date: 20081010
  Serious: Yes (Other)
  Sender: FDA-Public Use
  Company Number: B0524534A

PATIENT
  Age: 47 Year
  Sex: Female
  Weight: 80 kg

DRUGS (7)
  1. AMOXICILLIN + CLAVULANATE POTASSIUM [Suspect]
     Indication: INFECTION PROPHYLAXIS
     Route: 042
     Dates: start: 20080514, end: 20080514
  2. NEOSTIGMINE [Suspect]
     Route: 042
     Dates: start: 20080514, end: 20080514
  3. GLYCOPYRROLATE [Suspect]
     Route: 042
     Dates: start: 20080514, end: 20080514
  4. PROPOFOL [Concomitant]
  5. PANCURONIUM [Concomitant]
  6. MIDAZOLAM HCL [Concomitant]
  7. CHLORPHENIRAMINE MALEATE [Concomitant]

REACTIONS (4)
  - ANAPHYLACTIC REACTION [None]
  - FLUSHING [None]
  - HYPOTENSION [None]
  - OXYGEN SATURATION DECREASED [None]
